FAERS Safety Report 18731212 (Version 4)
Quarter: 2021Q1

REPORT INFORMATION
  Report Type: Report from Study
  Country: BE (occurrence: BE)
  Receive Date: 20210112
  Receipt Date: 20210305
  Transmission Date: 20210419
  Serious: Yes (Hospitalization, Other)
  Sender: FDA-Public Use
  Company Number: BE-TEVA-2020-BE-1862648

PATIENT
  Sex: Male
  Weight: 78 kg

DRUGS (11)
  1. FOLOVIT [Concomitant]
     Indication: PROPHYLAXIS
     Route: 048
     Dates: start: 20200801
  2. BENDAMUSTINE HYDROCHLORIDE. [Suspect]
     Active Substance: BENDAMUSTINE HYDROCHLORIDE
     Indication: HODGKIN^S DISEASE
     Route: 042
  3. ADCETRIS [Suspect]
     Active Substance: BRENTUXIMAB VEDOTIN
     Indication: ANGIOIMMUNOBLASTIC T-CELL LYMPHOMA
  4. ALLOPURINOL. [Concomitant]
     Active Substance: ALLOPURINOL
     Indication: PROPHYLAXIS
     Route: 048
     Dates: start: 20201003
  5. PIRACETAM [Concomitant]
     Active Substance: PIRACETAM
     Indication: TINNITUS
     Route: 048
     Dates: start: 20200903
  6. PANTOPRAZOLE [Concomitant]
     Active Substance: PANTOPRAZOLE
     Indication: PROPHYLAXIS
     Route: 048
     Dates: start: 20200614
  7. MEDROL [Concomitant]
     Active Substance: METHYLPREDNISOLONE
     Indication: SUPPORTIVE CARE
     Route: 048
     Dates: start: 20201030
  8. ADCETRIS [Suspect]
     Active Substance: BRENTUXIMAB VEDOTIN
     Indication: HODGKIN^S DISEASE
     Route: 065
     Dates: start: 20201103
  9. ACICLOVIR [Concomitant]
     Active Substance: ACYCLOVIR
     Indication: PROPHYLAXIS
     Route: 048
     Dates: start: 20200722
  10. COTRIMOXAZOLE [Concomitant]
     Active Substance: SULFAMETHOXAZOLE\TRIMETHOPRIM
     Indication: PROPHYLAXIS
     Route: 048
     Dates: start: 20201013
  11. STUGERON [Concomitant]
     Active Substance: CINNARIZINE
     Indication: TINNITUS
     Route: 048
     Dates: start: 20200903

REACTIONS (8)
  - Asthenia [Unknown]
  - Colitis [Recovered/Resolved]
  - Vomiting [Unknown]
  - Weight decreased [Recovering/Resolving]
  - Pyrexia [Unknown]
  - Product use in unapproved indication [Unknown]
  - Neuropathy peripheral [Unknown]
  - Ill-defined disorder [Not Recovered/Not Resolved]

NARRATIVE: CASE EVENT DATE: 20201209
